FAERS Safety Report 7454068-9 (Version None)
Quarter: 2011Q2

REPORT INFORMATION
  Report Type: 
  Country: None (occurrence: None)
  Receive Date: 20110502
  Receipt Date: 20110426
  Transmission Date: 20111010
  Serious: Yes (Hospitalization)
  Sender: FDA-Public Use
  Company Number: US-RB-026475-11

PATIENT
  Age: 48 Year
  Sex: Female

DRUGS (1)
  1. SUBOXONE [Suspect]
     Indication: PRODUCT USED FOR UNKNOWN INDICATION
     Dosage: DOSAGE INFORMATION UNKNOWN
     Route: 065

REACTIONS (4)
  - TRIGEMINAL NEURALGIA [None]
  - CONDITION AGGRAVATED [None]
  - MEMORY IMPAIRMENT [None]
  - CEREBROVASCULAR ACCIDENT [None]
